FAERS Safety Report 6870786-5 (Version None)
Quarter: 2010Q3

REPORT INFORMATION
  Report Type: 
  Country: None (occurrence: None)
  Receive Date: 20100723
  Receipt Date: 20100719
  Transmission Date: 20110219
  Serious: Yes (Death)
  Sender: FDA-Public Use
  Company Number: PHHY2010DE28023

PATIENT
  Sex: Male
  Weight: 103 kg

DRUGS (7)
  1. ALISKIREN ALI+ [Suspect]
     Indication: HYPERTENSION
     Dosage: UNK
     Route: 048
     Dates: start: 20081126
  2. ACE INHIBITOR NOS [Concomitant]
  3. BETA BLOCKING AGENTS [Concomitant]
  4. DIURETICS [Concomitant]
  5. ENALAPRIL ^RATIOPHARM^ [Concomitant]
     Dosage: 5 MG/DAY
     Dates: start: 20080401
  6. BISOPROLOL [Concomitant]
     Dosage: 5 MG/DAY
     Dates: start: 20081001
  7. ENALAPRIL COMP RATIOPHARM [Concomitant]
     Dates: start: 20081001

REACTIONS (1)
  - SUDDEN CARDIAC DEATH [None]
